FAERS Safety Report 12187560 (Version 1)
Quarter: 2016Q1

REPORT INFORMATION
  Report Type: Spontaneous
  Country: US (occurrence: US)
  Receive Date: 20160317
  Receipt Date: 20160317
  Transmission Date: 20160526
  Serious: Yes (Other)
  Sender: FDA-Public Use
  Company Number: US-MALLINCKRODT-T201600836

PATIENT
  Sex: Female

DRUGS (1)
  1. RESTORIL [Suspect]
     Active Substance: TEMAZEPAM
     Indication: INSOMNIA
     Dosage: 15 MG
     Route: 065
     Dates: start: 201602

REACTIONS (4)
  - Off label use [Unknown]
  - Intentional self-injury [Unknown]
  - Scar [Unknown]
  - Pain [Unknown]

NARRATIVE: CASE EVENT DATE: 20160212
